FAERS Safety Report 25566148 (Version 1)
Quarter: 2025Q3

REPORT INFORMATION
  Report Type: Report from Study
  Country: US (occurrence: US)
  Receive Date: 20250716
  Receipt Date: 20250716
  Transmission Date: 20251020
  Serious: Yes (Other)
  Sender: ABBVIE
  Company Number: US-ABBVIE-6283789

PATIENT
  Age: 61 Year
  Sex: Male
  Weight: 62 kg

DRUGS (11)
  1. VYALEV [Suspect]
     Active Substance: FOSCARBIDOPA\FOSLEVODOPA
     Indication: Parkinson^s disease
     Route: 058
     Dates: start: 20250313
  2. VYALEV [Suspect]
     Active Substance: FOSCARBIDOPA\FOSLEVODOPA
     Route: 058
  3. VITAMIN D [Concomitant]
     Active Substance: VITAMIN D NOS
     Indication: Vitamin supplementation
  4. ZOLOFT [Concomitant]
     Active Substance: SERTRALINE HYDROCHLORIDE
     Indication: Depression
  5. IBUPROFEN [Concomitant]
     Active Substance: IBUPROFEN
     Indication: Pain
  6. VITAMIN C [Concomitant]
     Active Substance: ASCORBIC ACID
     Indication: Vitamin supplementation
  7. GABAPENTIN [Concomitant]
     Active Substance: GABAPENTIN
     Indication: Sleep disorder therapy
  8. SERTRALINE [Concomitant]
     Active Substance: SERTRALINE HYDROCHLORIDE
     Indication: Product used for unknown indication
  9. TRAZODONE HCL [Concomitant]
     Active Substance: TRAZODONE HYDROCHLORIDE
     Indication: Product used for unknown indication
  10. MONTELUKAST [Concomitant]
     Active Substance: MONTELUKAST
     Indication: Product used for unknown indication
  11. NUPLAZID [Suspect]
     Active Substance: PIMAVANSERIN TARTRATE
     Indication: Hallucination
     Route: 048
     Dates: end: 20250626

REACTIONS (13)
  - Catheter site mass [Recovering/Resolving]
  - Catheter site warmth [Recovered/Resolved]
  - Drug ineffective [Recovered/Resolved]
  - Catheter site nodule [Recovering/Resolving]
  - Delusion [Recovered/Resolved]
  - Hallucination, visual [Recovering/Resolving]
  - Psychotic disorder [Recovered/Resolved]
  - Catheter site pain [Recovered/Resolved]
  - Hallucination [Recovered/Resolved]
  - Catheter site discomfort [Recovering/Resolving]
  - Catheter site erythema [Recovered/Resolved]
  - Gait disturbance [Recovered/Resolved]
  - Off label use [Unknown]

NARRATIVE: CASE EVENT DATE: 20250101
